FAERS Safety Report 9689825 (Version 3)
Quarter: 2017Q1

REPORT INFORMATION
  Report Type: Report from Study
  Country: US (occurrence: US)
  Receive Date: 20131115
  Receipt Date: 20170216
  Transmission Date: 20170429
  Serious: Yes (Other)
  Sender: FDA-Public Use
  Company Number: US-ROCHE-1303356

PATIENT

DRUGS (10)
  1. CYCLOPHOSPHAMIDE. [Suspect]
     Active Substance: CYCLOPHOSPHAMIDE
     Indication: CHRONIC LYMPHOCYTIC LEUKAEMIA
  2. RITUXIMAB [Suspect]
     Active Substance: RITUXIMAB
     Indication: CHRONIC LYMPHOCYTIC LEUKAEMIA
     Dosage: ONCE
     Route: 042
  3. VORINOSTAT [Suspect]
     Active Substance: VORINOSTAT
     Route: 048
  4. RITUXIMAB [Suspect]
     Active Substance: RITUXIMAB
     Indication: LYMPHOCYTIC LEUKAEMIA
     Dosage: ONCE PER CYCLE FOR CYCLES 2- 6
     Route: 042
  5. FLUDARABINE [Suspect]
     Active Substance: FLUDARABINE PHOSPHATE
     Indication: CHRONIC LYMPHOCYTIC LEUKAEMIA
  6. CYCLOPHOSPHAMIDE. [Suspect]
     Active Substance: CYCLOPHOSPHAMIDE
     Indication: LYMPHOCYTIC LEUKAEMIA
     Dosage: ON DAYS 1-3 OF EACH CYCLE GIVEN EVERY 28 DAYS
     Route: 042
  7. VORINOSTAT [Suspect]
     Active Substance: VORINOSTAT
     Indication: CHRONIC LYMPHOCYTIC LEUKAEMIA
     Route: 048
  8. RITUXIMAB [Suspect]
     Active Substance: RITUXIMAB
     Dosage: GIVEN DAY 1 OF EACH 3 MONTH CYCLE OF MAINTENANCE FOR UP TO 8 CYCLES
     Route: 042
  9. FLUDARABINE [Suspect]
     Active Substance: FLUDARABINE PHOSPHATE
     Indication: LYMPHOCYTIC LEUKAEMIA
     Dosage: ON DAYS 1-3 OF EACH CYCLE OF EACH CYCLE GIVEN EVERY 28 DAYS
     Route: 042
  10. VORINOSTAT [Suspect]
     Active Substance: VORINOSTAT
     Indication: LYMPHOCYTIC LEUKAEMIA
     Route: 048

REACTIONS (7)
  - Gastrointestinal toxicity [Unknown]
  - Fatigue [Unknown]
  - Cytopenia [Unknown]
  - Pulmonary embolism [Unknown]
  - Electrolyte imbalance [Unknown]
  - Sepsis [Unknown]
  - Cardiotoxicity [Unknown]
